FAERS Safety Report 8347599-0 (Version None)
Quarter: 2012Q2

REPORT INFORMATION
  Report Type: 
  Country: None (occurrence: None)
  Receive Date: 20120507
  Receipt Date: 20120426
  Transmission Date: 20120825
  Serious: Yes (Hospitalization, Other)
  Sender: FDA-Public Use
  Company Number: 2011SP019498

PATIENT
  Sex: Female

DRUGS (7)
  1. PEG-INTRON [Suspect]
     Indication: HEPATITIS C
     Dates: start: 20030101, end: 20030501
  2. PEG-INTRON [Suspect]
     Indication: HEPATITIS C
     Dates: start: 20020901
  3. PEG-INTRON [Suspect]
     Indication: HEPATITIS C
     Dates: start: 20110806, end: 20120105
  4. TELAPREVIR [Suspect]
     Indication: HEPATITIS C
     Dosage: UNK
     Dates: start: 20110806, end: 20111022
  5. REBETOL [Suspect]
     Indication: HEPATITIS C
     Dates: start: 20110806, end: 20120105
  6. REBETOL [Suspect]
     Indication: HEPATITIS C
     Dates: start: 20020901
  7. REBETOL [Suspect]
     Indication: HEPATITIS C
     Dates: start: 20030101, end: 20030501

REACTIONS (33)
  - ANAEMIA [None]
  - HYSTERECTOMY [None]
  - VIRAL LOAD INCREASED [None]
  - BODY TEMPERATURE INCREASED [None]
  - STAPHYLOCOCCAL INFECTION [None]
  - FEELING ABNORMAL [None]
  - FUNGAL INFECTION [None]
  - PHARYNGITIS STREPTOCOCCAL [None]
  - ALOPECIA [None]
  - HEPATIC STEATOSIS [None]
  - VOMITING [None]
  - RESTLESS LEGS SYNDROME [None]
  - CONJUNCTIVITIS INFECTIVE [None]
  - CLOSTRIDIAL INFECTION [None]
  - INJECTION SITE ERYTHEMA [None]
  - CRYING [None]
  - INFECTIOUS MONONUCLEOSIS [None]
  - VISION BLURRED [None]
  - RASH [None]
  - PAIN [None]
  - COLITIS [None]
  - ARTHRALGIA [None]
  - HYPOTHYROIDISM [None]
  - INSOMNIA [None]
  - IMPETIGO [None]
  - GINGIVITIS [None]
  - NAUSEA [None]
  - PAIN IN EXTREMITY [None]
  - BREAST MASS [None]
  - BACK PAIN [None]
  - EYE DISORDER [None]
  - BREAST PAIN [None]
  - THERAPY CESSATION [None]
